FAERS Safety Report 14615197 (Version 5)
Quarter: 2018Q2

REPORT INFORMATION
  Report Type: Spontaneous
  Country: US (occurrence: US)
  Receive Date: 20180308
  Receipt Date: 20180514
  Transmission Date: 20180711
  Serious: Yes (Hospitalization)
  Sender: FDA-Public Use
  Company Number: US-ACTELION-A-NJ2018-168787

PATIENT
  Age: 43 Year
  Sex: Male
  Weight: 126.98 kg

DRUGS (3)
  1. OPSUMIT [Suspect]
     Active Substance: MACITENTAN
     Indication: PULMONARY HYPERTENSION
     Dosage: 10 MG, QD
     Route: 048
  2. REMODULIN [Suspect]
     Active Substance: TREPROSTINIL
     Indication: PRODUCT USED FOR UNKNOWN INDICATION
     Dosage: 81 NG/KG, PER MIN
     Route: 042
  3. REVATIO [Concomitant]
     Active Substance: SILDENAFIL CITRATE

REACTIONS (13)
  - Dyspnoea [Unknown]
  - Headache [Unknown]
  - Skin infection [Unknown]
  - Feeling abnormal [Unknown]
  - Influenza [Unknown]
  - Respiratory disorder [Unknown]
  - Dyspnoea exertional [Unknown]
  - Device connection issue [Unknown]
  - Condition aggravated [Unknown]
  - Device occlusion [Unknown]
  - Device malfunction [Unknown]
  - Skin irritation [Unknown]
  - Drug dose omission [Unknown]
